FAERS Safety Report 26056199 (Version 1)
Quarter: 2025Q4

REPORT INFORMATION
  Report Type: Spontaneous
  Country: US (occurrence: US)
  Receive Date: 20251118
  Receipt Date: 20251118
  Transmission Date: 20260117
  Serious: No
  Sender: ALEXION PHARMACEUTICALS
  Company Number: US-AstraZeneca-CH-00994996AP

PATIENT
  Sex: Female

DRUGS (1)
  1. BUDESONIDE\FORMOTEROL [Suspect]
     Active Substance: BUDESONIDE\FORMOTEROL
     Dosage: 80 MICROGRAM
     Route: 065

REACTIONS (3)
  - Dyspnoea [Unknown]
  - Incorrect dose administered by device [Unknown]
  - Drug delivery system issue [Unknown]
